FAERS Safety Report 10575081 (Version 2)
Quarter: 2015Q1

REPORT INFORMATION
  Report Type: Spontaneous
  Country: US (occurrence: US)
  Receive Date: 20141111
  Receipt Date: 20150202
  Transmission Date: 20150720
  Serious: No
  Sender: FDA-Public Use
  Company Number: US-LEO PHARMA-230533

PATIENT
  Age: 53 Year
  Sex: Female

DRUGS (5)
  1. SINGULAIR [Concomitant]
     Active Substance: MONTELUKAST SODIUM
     Indication: HYPERSENSITIVITY
  2. GEMFIBROZIL. [Concomitant]
     Active Substance: GEMFIBROZIL
     Indication: BLOOD TRIGLYCERIDES INCREASED
  3. FLONASE [Concomitant]
     Active Substance: FLUTICASONE PROPIONATE
     Indication: HYPERSENSITIVITY
  4. ESTRADIOL. [Concomitant]
     Active Substance: ESTRADIOL
     Indication: HORMONE THERAPY
  5. PICATO [Suspect]
     Active Substance: INGENOL MEBUTATE
     Indication: ACTINIC KERATOSIS
     Route: 061
     Dates: start: 20141015

REACTIONS (4)
  - Application site irritation [Recovered/Resolved]
  - Eye swelling [Recovered/Resolved]
  - Application site erythema [Recovered/Resolved]
  - Application site swelling [Recovered/Resolved]

NARRATIVE: CASE EVENT DATE: 20141015
